FAERS Safety Report 22790313 (Version 6)
Quarter: 2023Q4

REPORT INFORMATION
  Report Type: Report from Study
  Country: US (occurrence: US)
  Receive Date: 20230805
  Receipt Date: 20231113
  Transmission Date: 20240110
  Serious: No
  Sender: FDA-Public Use
  Company Number: US-002147023-NVSC2023US169896

PATIENT
  Sex: Female

DRUGS (1)
  1. KISQALI [Suspect]
     Active Substance: RIBOCICLIB
     Indication: Breast cancer
     Dosage: 200 MG, QD
     Route: 048
     Dates: start: 202307

REACTIONS (12)
  - Nausea [Unknown]
  - Pruritus [Unknown]
  - Constipation [Unknown]
  - Fatigue [Unknown]
  - Urticaria [Recovering/Resolving]
  - Bone pain [Unknown]
  - Gait disturbance [Unknown]
  - Weight increased [Unknown]
  - Taste disorder [Unknown]
  - Back pain [Unknown]
  - Vomiting [Unknown]
  - Mobility decreased [Unknown]
